FAERS Safety Report 8822056 (Version 2)
Quarter: 2012Q4

REPORT INFORMATION
  Report Type: 
  Country: US (occurrence: US)
  Receive Date: 20121003
  Receipt Date: 20121024
  Transmission Date: 20130627
  Serious: Yes (Congenital Anomaly, Other)
  Sender: FDA-Public Use
  Company Number: US-BIOGENIDEC-2012BI040642

PATIENT
  Age: 0 None
  Sex: Female

DRUGS (1)
  1. AVONEX [Suspect]
     Indication: MATERNAL EXPOSURE TIMING UNSPECIFIED
     Route: 064
     Dates: start: 20100814, end: 20110122

REACTIONS (4)
  - Infantile apnoeic attack [Recovered/Resolved]
  - Foetal heart rate decreased [Recovered/Resolved]
  - Jaundice neonatal [Recovered/Resolved]
  - Congenital skin dimples [Unknown]
